FAERS Safety Report 4709758-5 (Version None)
Quarter: 2005Q3

REPORT INFORMATION
  Report Type: 
  Country: None (occurrence: None)
  Receive Date: 20050707
  Receipt Date: 20050621
  Transmission Date: 20060218
  Serious: Yes (Hospitalization)
  Sender: FDA-Public Use
  Company Number: US_0411107591

PATIENT
  Age: 48 Year
  Sex: Female
  Weight: 86 kg

DRUGS (20)
  1. ZYPREXA [Suspect]
     Dosage: 20 MG
     Dates: start: 20021029, end: 20040810
  2. FLUOXETINE [Concomitant]
  3. QUETIAPINE FUMARATE [Concomitant]
  4. RISPERDAL [Concomitant]
  5. DIVALPROEX SODIUM [Concomitant]
  6. MIRTAZAPINE [Concomitant]
  7. PAROXETINE HCL [Concomitant]
  8. SERTRALINE [Concomitant]
  9. PREDNISOLONE [Concomitant]
  10. ACETAMINOPHEN AND HYDROCODONE BITARTRATE [Concomitant]
  11. PREMARIN [Concomitant]
  12. VIOXX [Concomitant]
  13. NEURONTIN [Concomitant]
  14. DEPAKOTE [Concomitant]
  15. BEXTRA [Concomitant]
  16. PULMICORT (BUDENOSIDE) [Concomitant]
  17. FENOFIBRATE [Concomitant]
  18. ZOLPIDEM [Concomitant]
  19. LOVENOX [Concomitant]
  20. ACETYLSALICYLIC ACID SRT [Concomitant]

REACTIONS (13)
  - ALANINE AMINOTRANSFERASE INCREASED [None]
  - ASPARTATE AMINOTRANSFERASE INCREASED [None]
  - BLOOD CHOLESTEROL ABNORMAL [None]
  - BLOOD TRIGLYCERIDES INCREASED [None]
  - CHEST PAIN [None]
  - CHOLELITHIASIS [None]
  - DIABETES MELLITUS [None]
  - DYSPNOEA [None]
  - ELECTROCARDIOGRAM ABNORMAL [None]
  - HYPERTENSION [None]
  - OBESITY [None]
  - PLEURISY [None]
  - WEIGHT DECREASED [None]
